FAERS Safety Report 9607288 (Version 1)
Quarter: 2013Q3

REPORT INFORMATION
  Report Type: Spontaneous
  Country: US (occurrence: None)
  Receive Date: 20130930
  Receipt Date: 20130930
  Transmission Date: 20140515
  Serious: Yes (Other)
  Sender: FDA-Public Use
  Company Number: 2013P1003147

PATIENT
  Age: 39 Year
  Sex: Female
  Weight: 70.31 kg

DRUGS (2)
  1. PREDNISONE TABLETS USP 5 MG [Suspect]
     Route: 048
     Dates: start: 201011
  2. ZYRTEC [Concomitant]

REACTIONS (1)
  - Angioedema [None]
